FAERS Safety Report 8301256-5 (Version None)
Quarter: 2012Q2

REPORT INFORMATION
  Report Type: 
  Country: None (occurrence: None)
  Receive Date: 20120420
  Receipt Date: 20120420
  Transmission Date: 20120825
  Serious: Yes (Hospitalization)
  Sender: FDA-Public Use
  Company Number: None

PATIENT
  Age: 88 Year
  Sex: Female

DRUGS (2)
  1. AGGRENOX [Concomitant]
     Route: 048
  2. ENOXAPARIN [Suspect]
     Indication: CEREBROVASCULAR ACCIDENT
     Dosage: 100.0 MG
     Route: 058
     Dates: start: 20120111, end: 20120124

REACTIONS (4)
  - HAEMATEMESIS [None]
  - PLATELET FUNCTION TEST ABNORMAL [None]
  - GASTRIC DISORDER [None]
  - SUBDURAL HAEMATOMA [None]
